FAERS Safety Report 9046587 (Version 3)
Quarter: 2013Q2

REPORT INFORMATION
  Report Type: Spontaneous
  Country: US (occurrence: US)
  Receive Date: 20130204
  Receipt Date: 20130611
  Transmission Date: 20140414
  Serious: Yes (Hospitalization, Other)
  Sender: FDA-Public Use
  Company Number: US-BIOGENIDEC-2013BI008769

PATIENT
  Age: 62 Year
  Sex: Female

DRUGS (18)
  1. TYSABRI [Suspect]
     Indication: MULTIPLE SCLEROSIS
     Route: 042
     Dates: start: 20120823, end: 20121217
  2. SPIRIVA HANDIHALER [Concomitant]
     Route: 055
  3. MORPHINE SULFATE [Concomitant]
     Route: 048
  4. ONDANSETRON [Concomitant]
  5. GABAPENTIN [Concomitant]
     Route: 048
  6. PREDNISONE [Concomitant]
     Route: 048
  7. ANTIVERT [Concomitant]
     Route: 048
  8. TRAZODONE [Concomitant]
     Route: 048
  9. ZOFRAN [Concomitant]
     Route: 048
  10. RITALIN [Concomitant]
     Route: 048
  11. ZOLOFT [Concomitant]
     Route: 048
  12. NEXIUM [Concomitant]
     Route: 048
  13. AMBIEN [Concomitant]
     Route: 048
  14. CLONAZEPAM [Concomitant]
     Route: 048
  15. COMPAZINE [Concomitant]
     Route: 048
  16. DETROL LA [Concomitant]
  17. ATROVENT [Concomitant]
     Route: 055
  18. ADVAIR DISKUS [Concomitant]
     Route: 055

REACTIONS (2)
  - Squamous cell carcinoma of lung [Not Recovered/Not Resolved]
  - Respiratory distress [Unknown]
